FAERS Safety Report 10958318 (Version 2)
Quarter: 2015Q2

REPORT INFORMATION
  Report Type: Spontaneous
  Country: TR (occurrence: TR)
  Receive Date: 20150326
  Receipt Date: 20150410
  Transmission Date: 20150821
  Serious: Yes (Hospitalization, Other)
  Sender: FDA-Public Use
  Company Number: TR-IMPAX LABORATORIES, INC-2015-IPXL-00305

PATIENT
  Age: 58 Year
  Sex: Male

DRUGS (4)
  1. TRAMADOL [Suspect]
     Active Substance: TRAMADOL
     Dosage: 400 MG, UNK
     Route: 065
  2. TRAMADOL [Suspect]
     Active Substance: TRAMADOL
     Indication: PAIN
     Dosage: 200 MG, UNK
     Route: 065
  3. ALPRAZOLAM ER [Suspect]
     Active Substance: ALPRAZOLAM
     Indication: INSOMNIA
     Dosage: 1 MG, DAILY
     Route: 065
  4. ALPRAZOLAM ER [Suspect]
     Active Substance: ALPRAZOLAM
     Dosage: 3 MG, UNK
     Route: 065

REACTIONS (9)
  - Self-medication [Unknown]
  - Respiratory disorder [None]
  - Acute kidney injury [Recovering/Resolving]
  - Loss of consciousness [Recovering/Resolving]
  - Insomnia [None]
  - Hallucination, visual [Recovering/Resolving]
  - Confusional state [Recovering/Resolving]
  - Dyspnoea [Recovering/Resolving]
  - Brain oedema [None]
